FAERS Safety Report 12738984 (Version 2)
Quarter: 2016Q4

REPORT INFORMATION
  Report Type: Spontaneous
  Country: US (occurrence: US)
  Receive Date: 20160912
  Receipt Date: 20161220
  Transmission Date: 20170207
  Serious: No
  Sender: FDA-Public Use
  Company Number: US-009507513-1608USA011436

PATIENT
  Age: 19 Year
  Sex: Female
  Weight: 87.08 kg

DRUGS (1)
  1. NEXPLANON [Suspect]
     Active Substance: ETONOGESTREL
     Indication: CONTRACEPTION
     Dosage: 1 DF, 1 ROD/ 3 YEARS
     Route: 059
     Dates: start: 20130915, end: 20160815

REACTIONS (5)
  - Device breakage [Recovered/Resolved]
  - Skin wrinkling [Unknown]
  - Device kink [Recovered/Resolved]
  - Weight increased [Unknown]
  - Complication of device removal [Recovered/Resolved]

NARRATIVE: CASE EVENT DATE: 20160815
